FAERS Safety Report 5848628-6 (Version None)
Quarter: 2008Q3

REPORT INFORMATION
  Report Type: 
  Country: None (occurrence: None)
  Receive Date: 20080818
  Receipt Date: 20080807
  Transmission Date: 20090109
  Serious: Yes (Hospitalization, Other)
  Sender: FDA-Public Use
  Company Number: FR-ELI_LILLY_AND_COMPANY-FR200808001250

PATIENT
  Sex: Female

DRUGS (3)
  1. PROZAC [Suspect]
     Indication: DEPRESSION
     Dosage: 20 MG, DAILY (1/D)
     Route: 048
     Dates: start: 20080705, end: 20080710
  2. LEXOMIL [Concomitant]
     Route: 048
  3. INIPOMP [Concomitant]
     Route: 048

REACTIONS (2)
  - FALL [None]
  - RHABDOMYOLYSIS [None]
